APPROVED DRUG PRODUCT: POTASSIUM CHLORIDE
Active Ingredient: POTASSIUM CHLORIDE
Strength: 8MEQ
Dosage Form/Route: CAPSULE, EXTENDED RELEASE;ORAL
Application: A202886 | Product #001
Applicant: PH HEALTH LTD
Approved: Dec 26, 2013 | RLD: No | RS: No | Type: DISCN